FAERS Safety Report 15352850 (Version 1)
Quarter: 2018Q3

REPORT INFORMATION
  Report Type: Spontaneous
  Country: US (occurrence: US)
  Receive Date: 20180905
  Receipt Date: 20180905
  Transmission Date: 20181010
  Serious: No
  Sender: FDA-Public Use
  Company Number: US-TEVA-2018-US-951498

PATIENT
  Sex: Female

DRUGS (2)
  1. BOTOX [Concomitant]
     Active Substance: ONABOTULINUMTOXINA
     Indication: DYSTONIA
  2. CLONAZEPAM. [Suspect]
     Active Substance: CLONAZEPAM
     Dates: start: 2017

REACTIONS (3)
  - Irritable bowel syndrome [Unknown]
  - Constipation [Unknown]
  - Wrong technique in product usage process [Unknown]
